FAERS Safety Report 4346483-7 (Version None)
Quarter: 2004Q2

REPORT INFORMATION
  Report Type: 
  Country: None (occurrence: None)
  Receive Date: 20040426
  Receipt Date: 20030728
  Transmission Date: 20050107
  Serious: Yes (Other)
  Sender: FDA-Public Use
  Company Number: US-BRISTOL-MYERS SQUIBB COMPANY-12336434

PATIENT
  Age: 45 Year
  Sex: Female

DRUGS (16)
  1. CARBOPLATIN [Suspect]
     Indication: LUNG NEOPLASM MALIGNANT
     Dosage: DOSE = AUC 2
     Route: 042
     Dates: start: 20030718, end: 20030718
  2. TAXOL [Concomitant]
     Dosage: OVER 1 HR, DOSE = 50 MG/M^2
  3. RADIATION THERAPY [Concomitant]
  4. DARVOCET-N 100 [Concomitant]
     Dosage: OR EVERY 6 HR
     Route: 048
  5. NEXIUM [Concomitant]
     Route: 048
  6. ZOFRAN [Concomitant]
  7. SENOKOT [Concomitant]
     Route: 048
  8. ATIVAN [Concomitant]
     Dosage: AS NECESSARY
     Route: 048
  9. REGLAN [Concomitant]
     Route: 048
  10. DURAGESIC [Concomitant]
  11. MIRALAX [Concomitant]
  12. EPOGEN [Concomitant]
     Route: 058
  13. DECADRON [Concomitant]
     Indication: PREMEDICATION
     Route: 042
     Dates: start: 20030718, end: 20030718
  14. KYTRIL [Concomitant]
     Indication: PREMEDICATION
     Route: 042
     Dates: start: 20030718, end: 20030718
  15. CIMETIDINE HCL [Concomitant]
     Indication: PREMEDICATION
     Route: 042
     Dates: start: 20030718, end: 20030718
  16. BENADRYL [Concomitant]
     Indication: PREMEDICATION
     Route: 042
     Dates: start: 20030718, end: 20030718

REACTIONS (1)
  - HYPERSENSITIVITY [None]
